FAERS Safety Report 25707855 (Version 7)
Quarter: 2025Q4

REPORT INFORMATION
  Report Type: Spontaneous
  Country: EU (occurrence: EU)
  Receive Date: 20250820
  Receipt Date: 20251201
  Transmission Date: 20260117
  Serious: Yes (Other)
  Sender: APELLIS PHARMACEUTICALS
  Company Number: EU-BIOVITRUM-2025-FR-010405

PATIENT
  Weight: 55 kg

DRUGS (27)
  1. PEGCETACOPLAN [Suspect]
     Active Substance: PEGCETACOPLAN
     Indication: C3 glomerulopathy
     Dosage: 1080MG (1BOTTLE / VIAL), 2X 1WEEK (TWICE WEEKLY)
     Route: 058
     Dates: start: 20250731
  2. SPIRONOLACTONE [Suspect]
     Active Substance: SPIRONOLACTONE
     Indication: Oedematous kidney
     Dosage: ONCE DAILY
     Route: 048
     Dates: start: 202505, end: 20250818
  3. SPIRONOLACTONE [Suspect]
     Active Substance: SPIRONOLACTONE
     Indication: Oedematous kidney
     Dosage: ONCE DAILY
     Route: 048
     Dates: start: 202505, end: 20250818
  4. SPIRONOLACTONE [Suspect]
     Active Substance: SPIRONOLACTONE
     Indication: Renal injury
  5. SPIRONOLACTONE [Suspect]
     Active Substance: SPIRONOLACTONE
     Indication: C3 glomerulopathy
  6. SPIRONOLACTONE [Suspect]
     Active Substance: SPIRONOLACTONE
     Indication: C3 glomerulopathy
  7. PREDNISONE [Concomitant]
     Active Substance: PREDNISONE
     Indication: C3 glomerulopathy
     Dosage: ONCE DAILY
     Route: 048
     Dates: start: 202502
  8. PREDNISONE [Concomitant]
     Active Substance: PREDNISONE
     Indication: C3 glomerulopathy
     Dosage: ONCE DAILY
     Route: 048
     Dates: start: 202502
  9. MYCOPHENOLATE MOFETIL [Concomitant]
     Active Substance: MYCOPHENOLATE MOFETIL
     Indication: C3 glomerulopathy
     Dosage: TWICE DAILY
     Route: 048
     Dates: start: 202502
  10. MYCOPHENOLATE MOFETIL [Concomitant]
     Active Substance: MYCOPHENOLATE MOFETIL
     Indication: C3 glomerulopathy
     Dosage: TWICE DAILY
     Route: 048
     Dates: start: 202502
  11. MYCOPHENOLATE MOFETIL [Concomitant]
     Active Substance: MYCOPHENOLATE MOFETIL
     Dosage: 500MG MORNING AND EVENING
     Route: 048
     Dates: start: 20250129
  12. MYCOPHENOLATE MOFETIL [Concomitant]
     Active Substance: MYCOPHENOLATE MOFETIL
     Dosage: 500MG MORNING AND EVENING
     Route: 048
     Dates: start: 20250129
  13. ENALAPRIL [Concomitant]
     Active Substance: ENALAPRIL
     Indication: C3 glomerulopathy
     Dosage: ONCE DAILY
     Route: 048
     Dates: start: 20241218
  14. SODIUM BICARBONATE [Concomitant]
     Active Substance: SODIUM BICARBONATE
     Indication: C3 glomerulopathy
     Dosage: 3 TIMES DAILY
     Route: 048
     Dates: start: 202507
  15. SODIUM BICARBONATE [Concomitant]
     Active Substance: SODIUM BICARBONATE
     Indication: C3 glomerulopathy
     Dosage: 3 TIMES DAILY
     Route: 048
     Dates: start: 202507
  16. SODIUM BICARBONATE [Concomitant]
     Active Substance: SODIUM BICARBONATE
     Dosage: 500MG MORNING, NOON, AND EVENING
     Route: 048
  17. SODIUM BICARBONATE [Concomitant]
     Active Substance: SODIUM BICARBONATE
     Dosage: 500MG MORNING, NOON, AND EVENING
     Route: 048
  18. SOLIRIS [Concomitant]
     Active Substance: ECULIZUMAB
     Indication: C3 glomerulopathy
     Dosage: 1200 MG PER 15 DAYS, LAST ADMINISTRATION WAS ON 31-JUL-2025 AND WOULD BE COMPLETED ON 28-AUG-2025...
     Route: 042
     Dates: start: 20250326
  19. CHOLECALCIFEROL [Concomitant]
     Active Substance: CHOLECALCIFEROL
     Indication: C3 glomerulopathy
     Dosage: 50000 IU 1 AMPOULE EVERY MONDAYS
  20. Alfacalcidol CF [Concomitant]
     Indication: C3 glomerulopathy
     Dosage: DAILY
  21. Alfacalcidol CF [Concomitant]
     Dosage: 1 DF DAILY
     Route: 048
  22. Calcidose [Concomitant]
     Indication: C3 glomerulopathy
     Dosage: 500 MG 1 SACHET ONCE DAILY
     Route: 048
  23. Oracilin [Concomitant]
     Indication: Product used for unknown indication
     Dosage: TWICE DAILY
     Dates: start: 20250731, end: 20250814
  24. Oracilin [Concomitant]
     Dosage: TWICE DAILY
     Dates: start: 20250731, end: 20250814
  25. PENICILLIN V [Concomitant]
     Active Substance: PENICILLIN V
     Indication: Antibiotic prophylaxis
     Dosage: 1CP DE 1000000UI MORNING AND EVENING
     Route: 048
     Dates: start: 20250731
  26. PENICILLIN V [Concomitant]
     Active Substance: PENICILLIN V
     Indication: Antibiotic prophylaxis
     Dosage: 1CP DE 1000000UI MORNING AND EVENING
     Route: 048
     Dates: start: 20250731
  27. FUROSEMIDE [Concomitant]
     Active Substance: FUROSEMIDE
     Indication: C3 glomerulopathy
     Dosage: 80.000MG
     Route: 048

REACTIONS (12)
  - Off label use [Not Recovered/Not Resolved]
  - Injection site swelling [Unknown]
  - Injection site erythema [Recovered/Resolved]
  - Dizziness [Recovered/Resolved]
  - Tension headache [Recovered/Resolved]
  - Alopecia [Not Recovered/Not Resolved]
  - Condition aggravated [Not Recovered/Not Resolved]
  - Gynaecomastia [Unknown]
  - Injection site pain [Recovered/Resolved]
  - Extravasation [Recovered/Resolved]
  - Erythema [Recovering/Resolving]
  - Headache [Recovered/Resolved]

NARRATIVE: CASE EVENT DATE: 20250731
